FAERS Safety Report 5530026-6 (Version None)
Quarter: 2007Q4

REPORT INFORMATION
  Report Type: 
  Country: None (occurrence: None)
  Receive Date: 20071127
  Receipt Date: 20071113
  Transmission Date: 20080405
  Serious: Yes (Hospitalization)
  Sender: FDA-Public Use
  Company Number: TPA2007A02346

PATIENT
  Sex: Male

DRUGS (3)
  1. ROZEREM [Suspect]
     Indication: INSOMNIA
     Dosage: 8 MG, QHS, PER ORAL
     Route: 048
     Dates: start: 20070101, end: 20070101
  2. COUMADIN [Concomitant]
  3. MULTI-VITAMINS [Concomitant]

REACTIONS (3)
  - MOVEMENT DISORDER [None]
  - SENSATION OF HEAVINESS [None]
  - SOMNOLENCE [None]
